FAERS Safety Report 11327390 (Version 1)
Quarter: 2015Q3

REPORT INFORMATION
  Report Type: Spontaneous
  Country: US (occurrence: US)
  Receive Date: 20150731
  Receipt Date: 20150731
  Transmission Date: 20151125
  Serious: Yes (Hospitalization)
  Sender: FDA-Public Use
  Company Number: PHHY2015US089649

PATIENT
  Age: 25 Year
  Sex: Male

DRUGS (2)
  1. METHOTREXATE [Suspect]
     Active Substance: METHOTREXATE
     Indication: ACUTE LYMPHOCYTIC LEUKAEMIA
     Route: 042
  2. METHOTREXATE [Suspect]
     Active Substance: METHOTREXATE
     Dosage: UNK
     Route: 037

REACTIONS (7)
  - Hemiparesis [Recovered/Resolved]
  - Neurotoxicity [Recovered/Resolved]
  - Facial paresis [Recovered/Resolved]
  - Ataxia [Recovered/Resolved]
  - Dysarthria [Recovered/Resolved]
  - Asthenia [Recovered/Resolved]
  - Speech disorder [Recovered/Resolved]
